FAERS Safety Report 5743042-6 (Version None)
Quarter: 2008Q2

REPORT INFORMATION
  Report Type: 
  Country: None (occurrence: None)
  Receive Date: 20080513
  Receipt Date: 20080222
  Transmission Date: 20081010
  Serious: Yes (Other)
  Sender: FDA-Public Use
  Company Number: 200811158US

PATIENT
  Age: 72 Year
  Sex: Female

DRUGS (13)
  1. APIDRA [Suspect]
     Indication: TYPE 2 DIABETES MELLITUS
     Dates: start: 20080220, end: 20080222
  2. LANTUS [Suspect]
     Indication: TYPE 2 DIABETES MELLITUS
     Dosage: 22 U
     Dates: start: 20070901
  3. LANTUS [Suspect]
     Indication: TYPE 2 DIABETES MELLITUS
     Dosage: 18 U
  4. OPTICLIK GREY [Suspect]
     Indication: TYPE 2 DIABETES MELLITUS
     Dates: start: 20080222
  5. SYNTHROID [Concomitant]
  6. ERGOCALCIFEROL [Concomitant]
  7. ASCORBIC ACID [Concomitant]
  8. TOCOPHEROL CONCENTRATE CAP [Concomitant]
  9. FOLIC ACID [Concomitant]
  10. RETINOL [Concomitant]
  11. VITAMIN B NOS (MULTIPLE VITAMINS) [Concomitant]
  12. CALCIUM [Concomitant]
  13. SELENIUM [Concomitant]

REACTIONS (6)
  - ERYTHEMA [None]
  - HYPERSENSITIVITY [None]
  - HYPOGLYCAEMIA [None]
  - INJECTION SITE ERYTHEMA [None]
  - INJECTION SITE RASH [None]
  - PRURITUS [None]
